FAERS Safety Report 24070845 (Version 1)
Quarter: 2024Q3

REPORT INFORMATION
  Report Type: Spontaneous
  Country: IT (occurrence: IT)
  Receive Date: 20240710
  Receipt Date: 20240710
  Transmission Date: 20241016
  Serious: No
  Sender: ROCHE
  Company Number: None

PATIENT
  Age: 83 Year
  Sex: Female

DRUGS (1)
  1. PHESGO [Suspect]
     Active Substance: HYALURONIDASE-ZZXF\PERTUZUMAB\TRASTUZUMAB
     Indication: Breast cancer
     Dosage: START OF THERAPY WITH PERTUZUMAB, TRASTUZUMAB IV AND PACLITAXEL ON 18/08/2023 - UNTIL 6/10/2023 THER
     Route: 058
     Dates: start: 20231110, end: 20231110

REACTIONS (2)
  - Pain in extremity [Recovered/Resolved]
  - Transaminases increased [Recovering/Resolving]

NARRATIVE: CASE EVENT DATE: 20231110
